FAERS Safety Report 6883774-X (Version None)
Quarter: 2010Q3

REPORT INFORMATION
  Report Type: 
  Country: None (occurrence: None)
  Receive Date: 20100727
  Receipt Date: 20100713
  Transmission Date: 20110219
  Serious: Yes (Hospitalization)
  Sender: FDA-Public Use
  Company Number: AMI0022868

PATIENT
  Age: 67 Year
  Sex: Female

DRUGS (6)
  1. TIMOPTIC [Suspect]
     Indication: GLAUCOMA
     Dosage: BID - 046
     Dates: start: 20100517
  2. TAFLUPROST 0.0015% (MK-2452) [Suspect]
     Indication: GLAUCOMA
     Dosage: QD-046
     Dates: start: 20100517
  3. COREG [Concomitant]
  4. COUMADIN [Concomitant]
  5. LOTREL [Concomitant]
  6. INDAPAMIDE [Concomitant]

REACTIONS (1)
  - PULMONARY EMBOLISM [None]
